FAERS Safety Report 22149456 (Version 1)
Quarter: 2023Q1

REPORT INFORMATION
  Report Type: Spontaneous
  Country: US (occurrence: US)
  Receive Date: 20230329
  Receipt Date: 20230329
  Transmission Date: 20230418
  Serious: No
  Sender: FDA-Public Use
  Company Number: US-GLAXOSMITHKLINE-USCH2023013578

PATIENT

DRUGS (2)
  1. ABREVA [Suspect]
     Active Substance: DOCOSANOL
     Indication: Oral herpes
     Dosage: UNK
  2. DESITIN MAXIMUM STRENGTH DIAPER RASH [Suspect]
     Active Substance: ZINC OXIDE
     Indication: Oral herpes
     Dosage: UNK

REACTIONS (1)
  - Wrong technique in product usage process [Unknown]
